FAERS Safety Report 16075398 (Version 3)
Quarter: 2019Q2

REPORT INFORMATION
  Report Type: Report from Study
  Country: US (occurrence: US)
  Receive Date: 20190315
  Receipt Date: 20190409
  Transmission Date: 20190711
  Serious: Yes (Disabling)
  Sender: FDA-Public Use
  Company Number: US-SA-2019SA042654

PATIENT
  Age: 60 Year
  Sex: Male

DRUGS (2)
  1. INSULIN GLARGINE [Suspect]
     Active Substance: INSULIN GLARGINE
     Indication: TYPE 2 DIABETES MELLITUS
     Dosage: 30 U, QD
     Route: 058
  2. INSULIN GLARGINE [Suspect]
     Active Substance: INSULIN GLARGINE
     Dosage: 40 U, BID (MORNING AND NIGHT)
     Route: 058
     Dates: start: 201812

REACTIONS (17)
  - Osteoarthritis [Unknown]
  - Road traffic accident [Unknown]
  - Dizziness [Not Recovered/Not Resolved]
  - Burning sensation [Unknown]
  - Nerve injury [Unknown]
  - Vision blurred [Not Recovered/Not Resolved]
  - Blood glucose increased [Not Recovered/Not Resolved]
  - Disability [Not Recovered/Not Resolved]
  - Glycosylated haemoglobin abnormal [Recovered/Resolved]
  - Inability to afford medication [Unknown]
  - Chronic obstructive pulmonary disease [Unknown]
  - Hypoacusis [Not Recovered/Not Resolved]
  - Blood glucose increased [Recovered/Resolved]
  - Intentional product use issue [Unknown]
  - Inappropriate schedule of product administration [Unknown]
  - Intentional product misuse [Unknown]
  - Feeling abnormal [Not Recovered/Not Resolved]

NARRATIVE: CASE EVENT DATE: 201812
